FAERS Safety Report 6526559-6 (Version None)
Quarter: 2010Q1

REPORT INFORMATION
  Report Type: 
  Country: None (occurrence: None)
  Receive Date: 20100105
  Receipt Date: 20091223
  Transmission Date: 20100710
  Serious: Yes (Hospitalization)
  Sender: FDA-Public Use
  Company Number: PHEH2009US13170

PATIENT
  Sex: Female

DRUGS (2)
  1. EXJADE [Suspect]
     Dosage: 1500 MG, DAILY
     Route: 048
     Dates: start: 20090508, end: 20090724
  2. EXJADE [Suspect]
     Dosage: 500 MG, DAILY
     Route: 048

REACTIONS (3)
  - ABDOMINAL PAIN UPPER [None]
  - DRUG INTOLERANCE [None]
  - HAEMORRHOIDS [None]
